FAERS Safety Report 24464887 (Version 1)
Quarter: 2024Q4

REPORT INFORMATION
  Report Type: Report from Study
  Country: US (occurrence: US)
  Receive Date: 20241018
  Receipt Date: 20241018
  Transmission Date: 20250115
  Serious: No
  Sender: ROCHE
  Company Number: US-ROCHE-3516068

PATIENT
  Age: 20 Year
  Sex: Female
  Weight: 53.52 kg

DRUGS (14)
  1. XOLAIR [Suspect]
     Active Substance: OMALIZUMAB
     Indication: Idiopathic urticaria
     Dosage: 12 MONTHS,
     Route: 058
  2. XOLAIR [Suspect]
     Active Substance: OMALIZUMAB
  3. NADOLOL [Concomitant]
     Active Substance: NADOLOL
  4. MIDODRINE [Concomitant]
     Active Substance: MIDODRINE
  5. MONTELUKAST SODIUM [Concomitant]
     Active Substance: MONTELUKAST SODIUM
  6. FLUDROCORTISONE ACETATE [Concomitant]
     Active Substance: FLUDROCORTISONE ACETATE
  7. ARIPIPRAZOLE [Concomitant]
     Active Substance: ARIPIPRAZOLE
  8. GUANFACINE HYDROCHLORIDE [Concomitant]
     Active Substance: GUANFACINE HYDROCHLORIDE
  9. SERTRALINE HYDROCHLORIDE [Concomitant]
     Active Substance: SERTRALINE HYDROCHLORIDE
  10. LEVOTHYROXINE [Concomitant]
     Active Substance: LEVOTHYROXINE
  11. CELECOXIB [Concomitant]
     Active Substance: CELECOXIB
  12. CLOBETASOL PROPIONATE [Concomitant]
     Active Substance: CLOBETASOL PROPIONATE
  13. PREGABALIN [Concomitant]
     Active Substance: PREGABALIN
  14. LISDEXAMFETAMINE DIMESYLATE [Concomitant]
     Active Substance: LISDEXAMFETAMINE DIMESYLATE

REACTIONS (5)
  - Mechanical urticaria [Unknown]
  - Flushing [Unknown]
  - Flushing [Unknown]
  - Postural orthostatic tachycardia syndrome [Unknown]
  - Ehlers-Danlos syndrome [Unknown]

NARRATIVE: CASE EVENT DATE: 20231219
